FAERS Safety Report 4993278-7 (Version None)
Quarter: 2006Q1

REPORT INFORMATION
  Report Type: 
  Country: None (occurrence: None)
  Receive Date: 20060314
  Receipt Date: 20050802
  Transmission Date: 20060701
  Serious: Yes (Hospitalization)
  Sender: FDA-Public Use
  Company Number: 200511920BCC

PATIENT
  Age: 62 Year
  Sex: Male
  Weight: 97.5234 kg

DRUGS (14)
  1. E.S. BAYER BACK + BODY PAIN [Suspect]
     Indication: BACK PAIN
     Dosage: 1000 MG, ONCE, ORAL
     Route: 048
     Dates: start: 20050319
  2. BAYER 81 MG ASPIRIN (ACETYLSALICYLIC ACID) [Suspect]
     Dosage: OM, ORAL
     Route: 048
     Dates: end: 20050320
  3. ALEVE [Suspect]
     Dosage: PRN, ORAL
     Route: 048
     Dates: start: 20040101
  4. ALKA SELTZER PLUS COUGH AND COLD [Suspect]
     Dosage: ONCE
     Dates: start: 20041222
  5. ST. JOSEPH'S 81 MG (ACETYLSALICYLIC ACID) [Suspect]
     Dosage: OM, ORAL
     Route: 048
     Dates: end: 20050320
  6. NORVASC [Concomitant]
  7. RANITIDINE [Concomitant]
  8. ATACAND [Concomitant]
  9. ASCORBIC ACID [Concomitant]
  10. VITAMIN E [Concomitant]
  11. VITAMIN B-12 [Concomitant]
  12. ZINC [Concomitant]
  13. PHENTERMINE [Concomitant]
  14. DIET PILL [Concomitant]

REACTIONS (4)
  - ANAEMIA [None]
  - COLONIC POLYP [None]
  - LARGE INTESTINAL ULCER HAEMORRHAGE [None]
  - RECTAL HAEMORRHAGE [None]
